FAERS Safety Report 18243168 (Version 1)
Quarter: 2020Q3

REPORT INFORMATION
  Report Type: Spontaneous
  Country: US (occurrence: US)
  Receive Date: 20200908
  Receipt Date: 20200908
  Transmission Date: 20201103
  Serious: No
  Sender: FDA-Public Use
  Company Number: US-HARMONY BIOSCIENCES-2020HMY00799

PATIENT
  Sex: Female

DRUGS (2)
  1. ^LOTS OF OTHER MEDS^ [Concomitant]
     Indication: NARCOLEPSY
  2. WAKIX [Suspect]
     Active Substance: PITOLISANT HYDROCHLORIDE
     Indication: NARCOLEPSY

REACTIONS (1)
  - Rash [Unknown]
